FAERS Safety Report 22214012 (Version 2)
Quarter: 2023Q2

REPORT INFORMATION
  Report Type: Spontaneous
  Country: AT (occurrence: AT)
  Receive Date: 20230414
  Receipt Date: 20230626
  Transmission Date: 20230722
  Serious: Yes (Other)
  Sender: FDA-Public Use
  Company Number: AT-AMERICAN REGENT INC-2023000901

PATIENT
  Age: 60 Year
  Sex: Female

DRUGS (6)
  1. FERINJECT [Suspect]
     Active Substance: FERRIC CARBOXYMALTOSE
     Indication: Product used for unknown indication
     Dosage: 500 MG (3 X 500MG; 1500MG IN ONE WEEK/ALSO REPORTED AS AT LEAST 3 X 500 MG OVER 3 WEEKS)
     Route: 042
     Dates: start: 20210503, end: 20210503
  2. FERINJECT [Suspect]
     Active Substance: FERRIC CARBOXYMALTOSE
     Dosage: 500 MG (3 X 500MG; 1500MG IN ONE WEEK/ALSO REPORTED AS AT LEAST 3 X 500 MG OVER 3 WEEKS)
     Route: 042
     Dates: start: 202105, end: 202105
  3. FERINJECT [Suspect]
     Active Substance: FERRIC CARBOXYMALTOSE
     Dosage: 500 MG (3 X 500MG; 1500MG IN ONE WEEK/ALSO REPORTED AS AT LEAST 3 X 500 MG OVER 3 WEEKS)
     Route: 042
     Dates: start: 202105, end: 202105
  4. FERINJECT [Suspect]
     Active Substance: FERRIC CARBOXYMALTOSE
     Dosage: 1000 MG (2X 500 MG) (TOTAL OF 2500 MG)
     Route: 042
  5. FERRIC DERISOMALTOSE [Concomitant]
     Active Substance: FERRIC DERISOMALTOSE
     Indication: Product used for unknown indication
     Dosage: 1000 MILLIGRAM (2 X 500 MG) IN 5 WEEKS
     Route: 065
  6. FERRIC DERISOMALTOSE [Concomitant]
     Active Substance: FERRIC DERISOMALTOSE
     Dosage: 1 X 1000 MILLIGRAM
     Route: 065

REACTIONS (7)
  - Sarcoidosis [Unknown]
  - Osteomalacia [Unknown]
  - Bone contusion [Unknown]
  - Joint effusion [Unknown]
  - Osteoporosis [Unknown]
  - Psoriasis [Unknown]
  - Overdose [Unknown]
